FAERS Safety Report 4293503-4 (Version None)
Quarter: 2004Q1

REPORT INFORMATION
  Report Type: 
  Country: None (occurrence: None)
  Receive Date: 20040210
  Receipt Date: 20040203
  Transmission Date: 20041129
  Serious: Yes (Hospitalization)
  Sender: FDA-Public Use
  Company Number: 2004CG00226

PATIENT
  Age: 31 Year
  Sex: Female

DRUGS (4)
  1. MOPRAL [Suspect]
     Dosage: 1 DF QD PO
     Route: 048
     Dates: start: 19990402
  2. ATARAX [Concomitant]
  3. IMOVANE [Concomitant]
  4. SUBUTEX [Concomitant]

REACTIONS (2)
  - ANGIONEUROTIC OEDEMA [None]
  - GENERALISED OEDEMA [None]
